FAERS Safety Report 26100235 (Version 1)
Quarter: 2025Q4

REPORT INFORMATION
  Report Type: Spontaneous
  Country: EU (occurrence: EU)
  Receive Date: 20251128
  Receipt Date: 20251128
  Transmission Date: 20260117
  Serious: Yes (Death, Life-Threatening, Other)
  Sender: AMGEN
  Company Number: EU-KYOWAKIRIN-2025KK022667

PATIENT
  Sex: Male

DRUGS (1)
  1. ROMIPLOSTIM [Suspect]
     Active Substance: ROMIPLOSTIM
     Indication: Immune thrombocytopenia
     Dosage: UNK
     Route: 065

REACTIONS (2)
  - Mesenteric arterial occlusion [Fatal]
  - Pulmonary embolism [Unknown]
